FAERS Safety Report 9243440 (Version 1)
Quarter: 2013Q2

REPORT INFORMATION
  Report Type: Spontaneous
  Country: US (occurrence: US)
  Receive Date: 20130421
  Receipt Date: 20130421
  Transmission Date: 20140414
  Serious: Yes (Other)
  Sender: FDA-Public Use
  Company Number: US-AMGEN-USASP2013026544

PATIENT
  Age: 44 Year
  Sex: Female

DRUGS (10)
  1. NEUPOGEN [Suspect]
     Indication: PRODUCT USED FOR UNKNOWN INDICATION
     Dosage: UNK
  2. NEULASTA [Suspect]
     Indication: PRODUCT USED FOR UNKNOWN INDICATION
     Dosage: UNK
     Dates: end: 20121213
  3. AVASTIN                            /01555201/ [Concomitant]
     Indication: BREAST CANCER
     Dosage: UNK UNK, QWK
     Dates: start: 201210, end: 20130408
  4. AVASTIN                            /01555201/ [Concomitant]
     Indication: METASTASES TO LUNG
  5. CARBOPLATIN [Concomitant]
     Indication: BREAST CANCER
     Dosage: UNK
     Dates: start: 201210
  6. CARBOPLATIN [Concomitant]
     Indication: METASTASES TO LUNG
  7. GEMCITABINE [Concomitant]
     Indication: BREAST CANCER
     Dosage: UNK
     Dates: start: 201212
  8. GEMCITABINE [Concomitant]
     Indication: METASTASES TO LUNG
  9. ERIBULIN [Concomitant]
     Indication: BREAST CANCER
     Dosage: UNK UNK, QWK
     Dates: start: 20130318, end: 20130408
  10. ERIBULIN [Concomitant]
     Indication: METASTASES TO LUNG

REACTIONS (2)
  - Disease progression [Unknown]
  - Neutropenia [Not Recovered/Not Resolved]
